FAERS Safety Report 9817897 (Version 1)
Quarter: 2014Q1

REPORT INFORMATION
  Report Type: Spontaneous
  Country: BR (occurrence: BR)
  Receive Date: 20140115
  Receipt Date: 20140115
  Transmission Date: 20141002
  Serious: Yes (Hospitalization)
  Sender: FDA-Public Use
  Company Number: BR-ASTRAZENECA-2014SE01272

PATIENT
  Age: 627 Month
  Sex: Female
  Weight: 68 kg

DRUGS (6)
  1. ALENIA [Suspect]
     Indication: BRONCHITIS
     Dosage: 12/400 MCG TWICE A DAY
     Route: 055
     Dates: start: 2010
  2. BRILINTA [Suspect]
     Indication: MYOCARDIAL INFARCTION
     Route: 048
     Dates: start: 201304
  3. ASA [Concomitant]
     Indication: MYOCARDIAL INFARCTION
     Route: 048
     Dates: start: 201304
  4. DILTIAZEM [Concomitant]
     Indication: MYOCARDIAL INFARCTION
     Route: 048
     Dates: start: 201304
  5. ATORVASTATIN [Concomitant]
     Indication: MYOCARDIAL INFARCTION
     Route: 048
     Dates: start: 201304
  6. ENALAPRIL MALEATE [Concomitant]
     Indication: MYOCARDIAL INFARCTION
     Route: 048
     Dates: start: 201304

REACTIONS (2)
  - Myocardial infarction [Recovered/Resolved]
  - Petechiae [Not Recovered/Not Resolved]
